FAERS Safety Report 9304597 (Version 4)
Quarter: 2013Q2

REPORT INFORMATION
  Report Type: Spontaneous
  Country: US (occurrence: US)
  Receive Date: 20130523
  Receipt Date: 20130626
  Transmission Date: 20140414
  Serious: Yes (Hospitalization)
  Sender: FDA-Public Use
  Company Number: US-BIOGENIDEC-2013BI044455

PATIENT
  Age: 36 Year
  Sex: Female

DRUGS (8)
  1. TYSABRI [Suspect]
     Indication: MULTIPLE SCLEROSIS
     Route: 042
     Dates: start: 20120824
  2. SEROQUEL [Concomitant]
     Route: 048
  3. LEVOTHYROXINE [Concomitant]
     Route: 048
  4. OMEPRAZOLE [Concomitant]
     Route: 048
  5. HYDRALAZINE [Concomitant]
     Route: 048
  6. FERROUS SULFATE [Concomitant]
     Route: 048
  7. DULOXETINE [Concomitant]
     Route: 048
  8. LORATADINE [Concomitant]
     Route: 048

REACTIONS (15)
  - Hypertension [Not Recovered/Not Resolved]
  - Escherichia urinary tract infection [Recovered/Resolved]
  - Anaemia [Not Recovered/Not Resolved]
  - Multiple sclerosis relapse [Unknown]
  - Ileus [Recovered/Resolved]
  - Rhabdomyolysis [Recovered/Resolved]
  - Mental status changes [Unknown]
  - Renal failure acute [Unknown]
  - Hepatic failure [Unknown]
  - Convulsion [Recovered/Resolved]
  - Encephalopathy [Unknown]
  - Fall [Recovered/Resolved]
  - Pain in extremity [Not Recovered/Not Resolved]
  - Arthralgia [Not Recovered/Not Resolved]
  - Hypoaesthesia [Not Recovered/Not Resolved]
